FAERS Safety Report 15402159 (Version 1)
Quarter: 2018Q3

REPORT INFORMATION
  Report Type: Spontaneous
  Country: ES (occurrence: ES)
  Receive Date: 20180919
  Receipt Date: 20180919
  Transmission Date: 20181010
  Serious: Yes (Life-Threatening, Hospitalization)
  Sender: FDA-Public Use
  Company Number: ES-MYLANLABS-2018M1066522

PATIENT
  Age: 70 Year
  Sex: Female

DRUGS (1)
  1. MAGNESIUM [Suspect]
     Active Substance: MAGNESIUM
     Indication: CONSTIPATION
     Dosage: RECEIVED IN A GRANULATED FORMULATION ONE TABLESPOON DAILY, WHICH CONTAINED MAGNESIUM CARBONATE 29...
     Route: 048

REACTIONS (16)
  - Toxicity to various agents [Recovering/Resolving]
  - Respiratory distress [Recovering/Resolving]
  - Areflexia [Recovering/Resolving]
  - Quadriplegia [Recovering/Resolving]
  - Hypermagnesaemia [Recovering/Resolving]
  - Shock [Recovering/Resolving]
  - Megacolon [Recovered/Resolved]
  - Colitis ischaemic [Recovered/Resolved]
  - Intentional product misuse [Recovering/Resolving]
  - Hypotension [Recovering/Resolving]
  - Coma scale abnormal [Recovering/Resolving]
  - Haemodynamic instability [Recovering/Resolving]
  - Renal failure [Recovering/Resolving]
  - Metabolic acidosis [Recovering/Resolving]
  - Respiratory failure [Recovering/Resolving]
  - Anuria [Recovering/Resolving]
